FAERS Safety Report 4339650-X (Version None)
Quarter: 2004Q1

REPORT INFORMATION
  Report Type: 
  Country: None (occurrence: None)
  Receive Date: 20040329
  Receipt Date: 20040130
  Transmission Date: 20041129
  Serious: No
  Sender: FDA-Public Use
  Company Number: 04P-163-0248943-00

PATIENT
  Age: 67 Year
  Sex: Male
  Weight: 90.7194 kg

DRUGS (10)
  1. HUMIRA [Suspect]
     Indication: RHEUMATOID ARTHRITIS
     Dosage: 40 MG, 1 IN 2 WK, SUBCUTANEOUS
     Route: 058
     Dates: start: 20031228, end: 20040128
  2. PREDNISONE [Concomitant]
  3. WARFARIN SODIUM [Concomitant]
  4. LANSOPRAZOLE [Concomitant]
  5. TRIAMTERENE [Concomitant]
  6. FLUOXETINE [Concomitant]
  7. BISOPROLOL [Concomitant]
  8. BISOPROLOL [Concomitant]
  9. ATORVASTATIN [Concomitant]
  10. TORSEMIDE [Concomitant]

REACTIONS (1)
  - ARTHRITIS [None]
